FAERS Safety Report 8335937-4 (Version None)
Quarter: 2012Q2

REPORT INFORMATION
  Report Type: 
  Country: None (occurrence: None)
  Receive Date: 20120504
  Receipt Date: 20120430
  Transmission Date: 20120825
  Serious: Yes (Hospitalization)
  Sender: FDA-Public Use
  Company Number: US-PFIZER INC-US-WYE-H10734809

PATIENT
  Sex: Female

DRUGS (5)
  1. ATIVAN [Concomitant]
     Dosage: UNK
  2. EFFEXOR XR [Suspect]
     Indication: DEPRESSION
  3. ATIVAN [Concomitant]
     Dosage: 1 MG, 4X/DAY
  4. METOPROLOL [Concomitant]
     Dosage: UNK
  5. EFFEXOR XR [Suspect]
     Indication: ANXIETY
     Dosage: 300 MG, 1X/DAY
     Route: 048
     Dates: start: 20060101, end: 20090801

REACTIONS (2)
  - LICHENOID KERATOSIS [None]
  - URTICARIA [None]
